FAERS Safety Report 7454521-8 (Version None)
Quarter: 2011Q2

REPORT INFORMATION
  Report Type: 
  Country: None (occurrence: None)
  Receive Date: 20110425
  Receipt Date: 20110418
  Transmission Date: 20111010
  Serious: Yes (Hospitalization)
  Sender: FDA-Public Use
  Company Number: 2011MA003548

PATIENT
  Age: 50 Year
  Sex: Female

DRUGS (3)
  1. LINEZOLID [Concomitant]
  2. METOCLOPRAMIDE [Suspect]
     Dosage: 10 MG;Q8
  3. TRYPTOPHAN [Concomitant]

REACTIONS (10)
  - INFECTION [None]
  - POST PROCEDURAL COMPLICATION [None]
  - DIAPHRAGMATIC DISORDER [None]
  - SEROTONIN SYNDROME [None]
  - ABDOMINAL ABSCESS [None]
  - STAPHYLOCOCCAL INFECTION [None]
  - ACUTE RESPIRATORY DISTRESS SYNDROME [None]
  - POLYNEUROPATHY [None]
  - SEPTIC SHOCK [None]
  - POSTOPERATIVE ABSCESS [None]
